FAERS Safety Report 19261337 (Version 28)
Quarter: 2022Q4

REPORT INFORMATION
  Report Type: Report from Study
  Country: IE (occurrence: IE)
  Receive Date: 20210515
  Receipt Date: 20221229
  Transmission Date: 20230113
  Serious: Yes (Hospitalization, Other)
  Sender: FDA-Public Use
  Company Number: IE-SHIRE-IE202010955

PATIENT
  Age: 62 Year
  Sex: Male

DRUGS (20)
  1. HUMAN IMMUNOGLOBULIN G [Suspect]
     Active Substance: HUMAN IMMUNOGLOBULIN G
     Indication: Peripheral motor neuropathy
     Dosage: 100 GRAM
     Route: 042
     Dates: start: 20190205
  2. HUMAN IMMUNOGLOBULIN G [Suspect]
     Active Substance: HUMAN IMMUNOGLOBULIN G
     Indication: Sjogren^s syndrome
     Dosage: 100 GRAM
     Route: 042
     Dates: start: 20190205
  3. HUMAN IMMUNOGLOBULIN G [Suspect]
     Active Substance: HUMAN IMMUNOGLOBULIN G
     Indication: Neuropathy peripheral
     Dosage: 100 GRAM
     Route: 042
     Dates: start: 20190205
  4. HUMAN IMMUNOGLOBULIN G [Suspect]
     Active Substance: HUMAN IMMUNOGLOBULIN G
     Dosage: 100 GRAM
     Route: 042
     Dates: start: 20190205
  5. HUMAN IMMUNOGLOBULIN G [Suspect]
     Active Substance: HUMAN IMMUNOGLOBULIN G
     Dosage: 100 GRAM
     Route: 042
     Dates: start: 20190205
  6. HUMAN IMMUNOGLOBULIN G [Suspect]
     Active Substance: HUMAN IMMUNOGLOBULIN G
     Dosage: 100 GRAM
     Route: 042
     Dates: start: 20190205
  7. HUMAN IMMUNOGLOBULIN G [Suspect]
     Active Substance: HUMAN IMMUNOGLOBULIN G
     Dosage: 100 GRAM
     Route: 042
     Dates: start: 20190205
  8. HUMAN IMMUNOGLOBULIN G [Suspect]
     Active Substance: HUMAN IMMUNOGLOBULIN G
     Dosage: 100 GRAM, Q2WEEKS
     Route: 042
     Dates: start: 20190205
  9. ENTYVIO [Suspect]
     Active Substance: VEDOLIZUMAB
     Indication: Product used for unknown indication
     Dosage: UNK
     Route: 065
  10. PREDNISOLONE [Concomitant]
     Active Substance: PREDNISOLONE
     Dosage: 2.5 MILLIGRAM, QD
     Route: 050
  11. GABAPENTIN [Concomitant]
     Active Substance: GABAPENTIN
     Dosage: 100 MILLIGRAM
     Route: 050
  12. PLAQUENIL [Concomitant]
     Active Substance: HYDROXYCHLOROQUINE SULFATE
     Dosage: 200 MILLIGRAM, BID
     Route: 050
  13. AMITRIPTYLINE [Concomitant]
     Active Substance: AMITRIPTYLINE
     Dosage: 25 MILLIGRAM
     Route: 050
  14. ASPIRIN [Concomitant]
     Active Substance: ASPIRIN
     Dosage: 75 MILLIGRAM, QD
     Route: 050
  15. ROSUVASTATIN [Concomitant]
     Active Substance: ROSUVASTATIN
     Dosage: 20 MILLIGRAM, QD
     Route: 050
  16. OLMESARTAN MEDOXOMIL [Concomitant]
     Active Substance: OLMESARTAN MEDOXOMIL
     Dosage: 20 MILLIGRAM, QD
     Route: 050
  17. BISOPROLOL FUMARATE [Concomitant]
     Active Substance: BISOPROLOL FUMARATE
     Dosage: 2.5 MILLIGRAM, QD
     Route: 050
  18. BICALUTAMIDE [Concomitant]
     Active Substance: BICALUTAMIDE
     Dosage: 50 MILLIGRAM, QD
     Route: 050
  19. TRIPTORELIN [Concomitant]
     Active Substance: TRIPTORELIN
     Dosage: UNK UNK, 3/MONTH
     Route: 050
  20. IMURAN [Concomitant]
     Active Substance: AZATHIOPRINE
     Dosage: 50 MILLIGRAM, BID
     Route: 050

REACTIONS (35)
  - Metastases to liver [Not Recovered/Not Resolved]
  - Metastases to lung [Not Recovered/Not Resolved]
  - Post procedural haemorrhage [Unknown]
  - Prostate cancer [Not Recovered/Not Resolved]
  - Bone cancer [Not Recovered/Not Resolved]
  - Post procedural discomfort [Recovered/Resolved]
  - Nasopharyngitis [Recovered/Resolved]
  - Angiogram abnormal [Recovered/Resolved]
  - Poor quality sleep [Not Recovered/Not Resolved]
  - Grip strength decreased [Unknown]
  - Drug ineffective [Not Recovered/Not Resolved]
  - Sensory disturbance [Not Recovered/Not Resolved]
  - Weight decreased [Not Recovered/Not Resolved]
  - Urinary hesitation [Not Recovered/Not Resolved]
  - Urinary tract infection [Not Recovered/Not Resolved]
  - Dehydration [Not Recovered/Not Resolved]
  - Flank pain [Not Recovered/Not Resolved]
  - Poor venous access [Not Recovered/Not Resolved]
  - Hypoaesthesia [Not Recovered/Not Resolved]
  - Pallor [Recovering/Resolving]
  - Lethargy [Recovering/Resolving]
  - Flushing [Not Recovered/Not Resolved]
  - Chest pain [Recovered/Resolved]
  - Tremor [Not Recovered/Not Resolved]
  - Hyperhidrosis [Unknown]
  - Myalgia [Recovered/Resolved]
  - Fatigue [Unknown]
  - Balance disorder [Not Recovered/Not Resolved]
  - Pain in extremity [Unknown]
  - Musculoskeletal stiffness [Unknown]
  - Gait disturbance [Not Recovered/Not Resolved]
  - Alopecia [Unknown]
  - Contusion [Not Recovered/Not Resolved]
  - Extra dose administered [Unknown]
  - Inappropriate schedule of product administration [Not Recovered/Not Resolved]

NARRATIVE: CASE EVENT DATE: 20200303
